FAERS Safety Report 10264647 (Version 1)
Quarter: 2014Q2

REPORT INFORMATION
  Report Type: Spontaneous
  Country: US (occurrence: US)
  Receive Date: 20140627
  Receipt Date: 20140627
  Transmission Date: 20141212
  Serious: Yes (Life-Threatening, Hospitalization)
  Sender: FDA-Public Use
  Company Number: US-ASTRAZENECA-2014SE46259

PATIENT
  Age: 24362 Day
  Sex: Male

DRUGS (2)
  1. BRILINTA [Suspect]
     Indication: STENT PLACEMENT
     Dosage: 180 MG LOADING DOSE
     Route: 048
  2. BRILINTA [Suspect]
     Indication: STENT PLACEMENT
     Route: 048
     Dates: start: 20140618, end: 20140621

REACTIONS (3)
  - Acute myocardial infarction [Unknown]
  - Device occlusion [Unknown]
  - Drug dose omission [Unknown]
